FAERS Safety Report 23962403 (Version 1)
Quarter: 2024Q2

REPORT INFORMATION
  Report Type: Report from Study
  Country: FR (occurrence: FR)
  Receive Date: 20240611
  Receipt Date: 20240611
  Transmission Date: 20240715
  Serious: Yes (Other)
  Sender: FDA-Public Use
  Company Number: FR-MIRATI-MT2024PM06885

PATIENT
  Age: 70 Year
  Sex: Female
  Weight: 65.8 kg

DRUGS (1)
  1. KRAZATI [Suspect]
     Active Substance: ADAGRASIB
     Indication: Lung neoplasm malignant
     Dosage: 600 MG, QD
     Route: 048
     Dates: start: 202401, end: 20240214

REACTIONS (3)
  - Hepatic cytolysis [Recovered/Resolved]
  - Acute kidney injury [Recovered/Resolved]
  - Gastrointestinal disorder [Recovered/Resolved]

NARRATIVE: CASE EVENT DATE: 20240101
